FAERS Safety Report 6166553-0 (Version None)
Quarter: 2009Q2

REPORT INFORMATION
  Report Type: 
  Country: None (occurrence: None)
  Receive Date: 20090424
  Receipt Date: 20090414
  Transmission Date: 20091009
  Serious: Yes (Other)
  Sender: FDA-Public Use
  Company Number: AT-ROCHE-627165

PATIENT
  Age: 70 Year
  Sex: Female
  Weight: 63 kg

DRUGS (1)
  1. BONIVA [Suspect]
     Indication: OSTEOPOROSIS
     Dosage: REPORTED DOSE: 3 MG/3 ML
     Route: 042
     Dates: start: 20090327

REACTIONS (2)
  - BLOOD PRESSURE DECREASED [None]
  - VOMITING [None]
